FAERS Safety Report 4321168-1 (Version None)
Quarter: 2004Q1

REPORT INFORMATION
  Report Type: 
  Country: None (occurrence: None)
  Receive Date: 20040312
  Receipt Date: 20031231
  Transmission Date: 20041129
  Serious: Yes (Hospitalization)
  Sender: FDA-Public Use
  Company Number: S03-USA-05406-01

PATIENT

DRUGS (1)
  1. LEXAPRO [Suspect]

REACTIONS (1)
  - TACHYCARDIA [None]
